FAERS Safety Report 21692767 (Version 2)
Quarter: 2022Q4

REPORT INFORMATION
  Report Type: Spontaneous
  Country: JP (occurrence: JP)
  Receive Date: 20221207
  Receipt Date: 20221215
  Transmission Date: 20230113
  Serious: Yes (Hospitalization)
  Sender: FDA-Public Use
  Company Number: JP-MSD-2211JPN003849J

PATIENT
  Age: 49 Year
  Sex: Female
  Weight: 63 kg

DRUGS (4)
  1. BELSOMRA [Suspect]
     Active Substance: SUVOREXANT
     Dosage: 105 MILLIGRAM, ONCE
     Route: 048
  2. PREGABALIN [Concomitant]
     Active Substance: PREGABALIN
     Dosage: 5750 MILLIGRAM, ONCE
     Route: 048
  3. BENIDIPINE HYDROCHLORIDE [Concomitant]
     Active Substance: BENIDIPINE HYDROCHLORIDE
     Dosage: 160 MILLIGRAM, ONCE
     Route: 048
  4. ESZOPICLONE [Concomitant]
     Active Substance: ESZOPICLONE
     Dosage: 20 MILLIGRAM, ONCE
     Route: 048

REACTIONS (1)
  - Intentional overdose [Unknown]
